FAERS Safety Report 18682575 (Version 1)
Quarter: 2020Q4

REPORT INFORMATION
  Report Type: Report from Study
  Country: None (occurrence: US)
  Receive Date: 20201229
  Receipt Date: 20201229
  Transmission Date: 20210114
  Serious: Yes (Hospitalization, Other)
  Sender: FDA-Public Use
  Company Number: US-ABBVIE-20K-163-3410170-00

PATIENT
  Age: 68 Year
  Sex: Male

DRUGS (4)
  1. HUMIRA [Suspect]
     Active Substance: ADALIMUMAB
     Indication: PSORIATIC ARTHROPATHY
  2. HUMIRA [Suspect]
     Active Substance: ADALIMUMAB
     Indication: RHEUMATOID ARTHRITIS
     Dosage: CITRATE FREE
     Route: 058
  3. HUMIRA [Suspect]
     Active Substance: ADALIMUMAB
     Indication: RHEUMATOID ARTHRITIS
     Dosage: CITRATE FREE
     Route: 058
  4. HUMIRA [Suspect]
     Active Substance: ADALIMUMAB
     Indication: PSORIATIC ARTHROPATHY

REACTIONS (16)
  - Cardiac disorder [Unknown]
  - Coronary artery occlusion [Unknown]
  - Intervertebral disc degeneration [Unknown]
  - Limb injury [Unknown]
  - Bursitis [Unknown]
  - Pneumonia [Unknown]
  - Facial bones fracture [Unknown]
  - Heart rate irregular [Unknown]
  - Osteoarthritis [Unknown]
  - Back pain [Unknown]
  - Pain in extremity [Unknown]
  - Road traffic accident [Unknown]
  - Pain [Unknown]
  - Arthralgia [Unknown]
  - Iron deficiency [Unknown]
  - Fall [Unknown]

NARRATIVE: CASE EVENT DATE: 201905
